FAERS Safety Report 5071878-6 (Version None)
Quarter: 2006Q3

REPORT INFORMATION
  Report Type: 
  Country: None (occurrence: None)
  Receive Date: 20060804
  Receipt Date: 20060727
  Transmission Date: 20061208
  Serious: Yes (Hospitalization)
  Sender: FDA-Public Use
  Company Number: FR-BOEHRINGER INGELHEIM PHARMACEUTICALS, INC.-2006-FF-00665FF

PATIENT
  Age: 57 Year
  Sex: Male

DRUGS (9)
  1. SPIRIVA [Suspect]
     Indication: CHRONIC OBSTRUCTIVE PULMONARY DISEASE
     Route: 055
     Dates: start: 20060629, end: 20060705
  2. SYMBICORT [Concomitant]
     Route: 048
     Dates: start: 20060703, end: 20060705
  3. NEXIUM [Concomitant]
  4. NASONEX [Concomitant]
  5. ATACAND [Concomitant]
  6. ISOPTIN [Concomitant]
  7. PLAVIX [Concomitant]
  8. DEROXAT [Concomitant]
  9. ATORVASTATIN CALCIUM [Concomitant]

REACTIONS (1)
  - RASH ERYTHEMATOUS [None]
